FAERS Safety Report 10660518 (Version 1)
Quarter: 2014Q4

REPORT INFORMATION
  Report Type: Spontaneous
  Country: US (occurrence: US)
  Receive Date: 20141217
  Receipt Date: 20141217
  Transmission Date: 20150529
  Serious: Yes (Other)
  Sender: FDA-Public Use
  Company Number: US-MUNDIPHARMA DS AND PHARMACOVIGILANCE-USA-2014-0115248

PATIENT
  Sex: Male

DRUGS (4)
  1. FENTANYL. [Suspect]
     Active Substance: FENTANYL
     Indication: DRUG ABUSE
  2. KLONOPIN [Suspect]
     Active Substance: CLONAZEPAM
     Indication: DRUG ABUSE
  3. OXYCONTIN [Suspect]
     Active Substance: OXYCODONE HYDROCHLORIDE
     Indication: DRUG ABUSE
  4. DILAUDID [Suspect]
     Active Substance: HYDROMORPHONE HYDROCHLORIDE
     Indication: DRUG ABUSE

REACTIONS (7)
  - Drug withdrawal syndrome [Unknown]
  - Euphoric mood [Unknown]
  - Drug dependence [Unknown]
  - Malaise [Unknown]
  - Unevaluable event [Unknown]
  - Drug abuse [Unknown]
  - Memory impairment [Unknown]
